FAERS Safety Report 8531534-6 (Version None)
Quarter: 2012Q3

REPORT INFORMATION
  Report Type: 
  Country: None (occurrence: None)
  Receive Date: 20120723
  Receipt Date: 20120712
  Transmission Date: 20120928
  Serious: Yes (Other)
  Sender: FDA-Public Use
  Company Number: JP-VERTEX PHARMACEUTICALS INC.-AE-2012-009776

PATIENT
  Age: 45 Year
  Sex: Female

DRUGS (11)
  1. MYSER [Concomitant]
  2. RIBAVIRIN [Concomitant]
     Route: 048
  3. ALLEGRA [Concomitant]
     Dates: start: 20120518
  4. LANSOPRAZOLE [Concomitant]
     Dates: start: 20120514
  5. ALLOPURINOL [Concomitant]
  6. PEGASYS [Concomitant]
     Indication: HEPATITIS C
     Route: 058
     Dates: start: 20120514
  7. RIBAVIRIN [Concomitant]
     Indication: HEPATITIS C
     Route: 048
     Dates: start: 20120514
  8. ALLOPURINOL [Concomitant]
  9. TELAVIC (TELAPREVIR) [Suspect]
     Indication: HEPATITIS C
     Route: 048
     Dates: start: 20120514, end: 20120709
  10. RIBAVIRIN [Concomitant]
     Dates: end: 20120709
  11. LANSOPRAZOLE [Concomitant]

REACTIONS (2)
  - MATERNAL EXPOSURE DURING PREGNANCY [None]
  - PANCREATITIS ACUTE [None]
